FAERS Safety Report 9629639 (Version 2)
Quarter: 2013Q4

REPORT INFORMATION
  Report Type: Spontaneous
  Country: US (occurrence: US)
  Receive Date: 20131017
  Receipt Date: 20131023
  Transmission Date: 20140711
  Serious: No
  Sender: FDA-Public Use
  Company Number: US-PFIZER INC-2013297834

PATIENT
  Age: 52 Year
  Sex: Female
  Weight: 79.37 kg

DRUGS (3)
  1. ATORVASTATIN CALCIUM [Suspect]
     Indication: BLOOD CHOLESTEROL INCREASED
     Dosage: UNK
     Dates: start: 2012
  2. LORAZEPAM [Concomitant]
     Indication: ANXIETY
     Dosage: 0.5 MG, AS NEEDED
  3. HYZAAR [Concomitant]
     Indication: HYPERTENSION
     Dosage: 25 MG/ 100 MG, 1X/DAY

REACTIONS (4)
  - Alopecia [Unknown]
  - Dry skin [Unknown]
  - Abdominal pain upper [Unknown]
  - Swelling [Unknown]
